FAERS Safety Report 4882557-X (Version None)
Quarter: 2006Q1

REPORT INFORMATION
  Report Type: 
  Country: None (occurrence: None)
  Receive Date: 20060113
  Receipt Date: 20051223
  Transmission Date: 20060701
  Serious: No
  Sender: FDA-Public Use
  Company Number: 1931

PATIENT
  Age: 25 Year
  Sex: Female

DRUGS (2)
  1. AMNESTEEM [Suspect]
     Dates: start: 20040427
  2. AMNESTEEM [Suspect]
     Dates: start: 20040528

REACTIONS (5)
  - ABDOMINAL PAIN UPPER [None]
  - BONE PAIN [None]
  - DEPRESSION [None]
  - SUICIDE ATTEMPT [None]
  - VOMITING [None]
